FAERS Safety Report 5213539-6 (Version None)
Quarter: 2007Q1

REPORT INFORMATION
  Report Type: 
  Country: None (occurrence: None)
  Receive Date: 20070119
  Receipt Date: 20070108
  Transmission Date: 20070707
  Serious: Yes (Hospitalization)
  Sender: FDA-Public Use
  Company Number: 2007UW00954

PATIENT
  Age: 28171 Day
  Sex: Male

DRUGS (19)
  1. ROSUVASTATIN [Suspect]
     Indication: DYSLIPIDAEMIA
     Route: 048
     Dates: start: 20060501, end: 20060723
  2. ROSUVASTATIN [Suspect]
     Route: 048
     Dates: start: 20061124
  3. ABT-335 FENOFIBRIC ACID CHOLINE SALT [Suspect]
     Indication: DYSLIPIDAEMIA
     Route: 048
     Dates: start: 20060725, end: 20061122
  4. ABT-335 FENOFIBRIC ACID CHOLINE SALT [Suspect]
     Route: 048
     Dates: start: 20061124
  5. CLOPIDOGREL BISULFATE [Concomitant]
     Indication: CORONARY ARTERY DISEASE
     Dates: start: 20031201
  6. ASPIRIN [Concomitant]
     Indication: CORONARY ARTERY DISEASE
     Dates: start: 20031201, end: 20061110
  7. METOPROLOL SUCCINATE [Concomitant]
     Indication: HYPERTENSION
     Route: 048
     Dates: start: 20031201
  8. PARACETAMOL [Concomitant]
     Indication: NECK PAIN
     Dates: start: 20060808, end: 20060808
  9. PARACETAMOL [Concomitant]
     Indication: ARTHRALGIA
     Dates: start: 20060808, end: 20060808
  10. PARACETAMOL [Concomitant]
     Dates: start: 20060817, end: 20060817
  11. PARACETAMOL [Concomitant]
     Dates: start: 20060817, end: 20060817
  12. PARACETAMOL [Concomitant]
     Dosage: 500 MG, 5 TIMES TOTAL
     Dates: start: 20060906, end: 20060908
  13. PARACETAMOL [Concomitant]
     Dosage: 500 MG, 5 TIMES TOTAL
     Dates: start: 20060906, end: 20060908
  14. PARACETAMOL [Concomitant]
     Dosage: 2 TABLETS, TWICE
     Dates: start: 20060915, end: 20060915
  15. PARACETAMOL [Concomitant]
     Dosage: 2 TABLETS, TWICE
     Dates: start: 20060915, end: 20060915
  16. CEPHALEXIN [Concomitant]
     Indication: ABSCESS
     Dates: start: 20060821, end: 20060901
  17. CIPROFLOXACIN HCL [Concomitant]
     Indication: DIVERTICULITIS
     Dates: start: 20061021, end: 20061030
  18. INFLUENZA VACCINE [Concomitant]
     Indication: PROPHYLAXIS
     Dates: start: 20061016, end: 20061016
  19. LOTRISONE [Concomitant]
     Indication: CANDIDIASIS
     Dosage: 2 DOSAGE FORMS
     Dates: start: 20061106

REACTIONS (9)
  - BRADYCARDIA [None]
  - COLONIC POLYP [None]
  - DIVERTICULITIS [None]
  - DIZZINESS [None]
  - HAEMOGLOBIN DECREASED [None]
  - HYDRONEPHROSIS [None]
  - LOWER GASTROINTESTINAL HAEMORRHAGE [None]
  - MELANOSIS COLI [None]
  - SYNCOPE [None]
